FAERS Safety Report 8812798 (Version 1)
Quarter: 2012Q4

REPORT INFORMATION
  Report Type: 
  Country: KR (occurrence: KR)
  Receive Date: 20120927
  Receipt Date: 20120927
  Transmission Date: 20130627
  Serious: Yes (Other)
  Sender: FDA-Public Use
  Company Number: PHHY2012KR082552

PATIENT
  Age: 40 Year
  Sex: Male

DRUGS (1)
  1. CODEINE PHOSPHATE [Suspect]
     Indication: COUGH

REACTIONS (2)
  - Dysphagia [Recovered/Resolved]
  - Constipation [Unknown]
